FAERS Safety Report 14061533 (Version 1)
Quarter: 2017Q4

REPORT INFORMATION
  Report Type: Spontaneous
  Country: US (occurrence: US)
  Receive Date: 20171009
  Receipt Date: 20171009
  Transmission Date: 20180321
  Serious: No
  Sender: FDA-Public Use
  Company Number: US-TEVA-749600ACC

PATIENT
  Sex: Male

DRUGS (2)
  1. MORPHINE SULFATE IMMEDIATE RELEASE [Suspect]
     Active Substance: MORPHINE SULFATE
     Dosage: 120 MILLIGRAM DAILY;
     Route: 065
  2. MORPHINE SULFATE IMMEDIATE RELEASE [Suspect]
     Active Substance: MORPHINE SULFATE
     Indication: BACK PAIN
     Dosage: 180 MILLIGRAM DAILY;
     Route: 065

REACTIONS (2)
  - Pancreatic disorder [Unknown]
  - Lung disorder [Unknown]
